FAERS Safety Report 8865476 (Version 1)
Quarter: 2012Q4

REPORT INFORMATION
  Report Type: 
  Country: US (occurrence: US)
  Receive Date: 20121024
  Receipt Date: 20121024
  Transmission Date: 20130627
  Serious: No
  Sender: FDA-Public Use
  Company Number: US-AMGEN-USASP2012003207

PATIENT
  Age: 61 Year
  Sex: Male
  Weight: 106.58 kg

DRUGS (8)
  1. ENBREL [Suspect]
     Indication: PRODUCT USED FOR UNKNOWN INDICATION
     Dosage: 50 mg, qwk
  2. JANUMET [Concomitant]
     Dosage: UNK
     Route: 048
  3. DIOVAN [Concomitant]
     Dosage: 40 mg, UNK
     Route: 048
  4. ASA [Concomitant]
     Dosage: 81 mg, UNK
     Route: 048
  5. PRAVASTATIN [Concomitant]
     Dosage: 10 mg, UNK
     Route: 048
  6. ALEVE [Concomitant]
     Dosage: 220 mg, UNK
     Route: 048
  7. HYDROCODONE/APAP [Concomitant]
     Dosage: 5 mg, UNK
     Route: 048
  8. HYDROCODONE/APAP [Concomitant]
     Dosage: 500 mg, UNK
     Route: 048

REACTIONS (3)
  - Arthralgia [Unknown]
  - Gastroenteritis viral [Unknown]
  - Nasopharyngitis [Unknown]
